FAERS Safety Report 19597709 (Version 3)
Quarter: 2025Q4

REPORT INFORMATION
  Report Type: Spontaneous
  Country: EU (occurrence: EU)
  Receive Date: 20210723
  Receipt Date: 20251022
  Transmission Date: 20260117
  Serious: Yes (Other)
  Sender: NOVO NORDISK
  Company Number: EU-NOVOPROD-829875

PATIENT
  Age: 66 Year
  Sex: Male
  Weight: 125 kg

DRUGS (1)
  1. OZEMPIC [Suspect]
     Active Substance: SEMAGLUTIDE
     Indication: Type 2 diabetes mellitus
     Dosage: 1 MG, QW
     Dates: start: 20191014

REACTIONS (2)
  - Pancreatic carcinoma metastatic [Recovered/Resolved with Sequelae]
  - Pancreatic fistula [Recovering/Resolving]

NARRATIVE: CASE EVENT DATE: 20210601
